FAERS Safety Report 8121168-X (Version None)
Quarter: 2012Q1

REPORT INFORMATION
  Report Type: 
  Country: None (occurrence: None)
  Receive Date: 20120208
  Receipt Date: 20120202
  Transmission Date: 20120608
  Serious: Yes (Hospitalization)
  Sender: FDA-Public Use
  Company Number: DK-B.I. PHARMACEUTICALS,INC./RIDGEFIELD-2012-SW-00074DB

PATIENT
  Sex: Male

DRUGS (9)
  1. SINGULAIR [Concomitant]
  2. TRANDOLAPRIL [Suspect]
     Indication: CARDIAC FAILURE
     Dosage: 2 MG
     Route: 048
     Dates: start: 20111222, end: 20111226
  3. POTASSIUM CHLORIDE [Concomitant]
  4. METOPROLOL SUCCINATE [Concomitant]
  5. PRADAXA [Suspect]
     Indication: ATRIAL FIBRILLATION
     Dosage: 220 MG
     Route: 048
     Dates: start: 20111223, end: 20111226
  6. AMOXICILLIN AND CLAVULANATE POTASSIUM [Concomitant]
  7. CORDAN [Concomitant]
     Indication: ATRIAL FIBRILLATION
  8. FUROSEMIDE [Concomitant]
  9. FLUTICASONE PROPIONATE/SALMETEROL [Concomitant]

REACTIONS (1)
  - RENAL IMPAIRMENT [None]
